FAERS Safety Report 15542748 (Version 1)
Quarter: 2018Q4

REPORT INFORMATION
  Report Type: Spontaneous
  Country: AU (occurrence: AU)
  Receive Date: 20181023
  Receipt Date: 20181023
  Transmission Date: 20190205
  Serious: Yes (Other)
  Sender: FDA-Public Use
  Company Number: AU-ALSI-201800568

PATIENT
  Age: 35 Year
  Sex: Female

DRUGS (8)
  1. PROPOFOL. [Concomitant]
     Active Substance: PROPOFOL
  2. ISOFLURANE. [Concomitant]
     Active Substance: ISOFLURANE
  3. NITROUS OXIDE. [Concomitant]
     Active Substance: NITROUS OXIDE
  4. OXYGEN. [Concomitant]
     Active Substance: OXYGEN
  5. MORPHINE [Concomitant]
     Active Substance: MORPHINE
  6. FENTANYL. [Concomitant]
     Active Substance: FENTANYL
  7. CARBON DIOXIDE. [Suspect]
     Active Substance: CARBON DIOXIDE
     Indication: PNEUMOTHORAX
     Route: 055
  8. ROCURONIUM [Concomitant]
     Active Substance: ROCURONIUM BROMIDE

REACTIONS (2)
  - Circulatory collapse [Recovered/Resolved]
  - Off label use [Recovered/Resolved]
